FAERS Safety Report 16004105 (Version 2)
Quarter: 2019Q1

REPORT INFORMATION
  Report Type: Spontaneous
  Country: LT (occurrence: LT)
  Receive Date: 20190226
  Receipt Date: 20190227
  Transmission Date: 20190418
  Serious: Yes (Hospitalization)
  Sender: FDA-Public Use
  Company Number: LT-ROCHE-2270404

PATIENT
  Age: 3 Week
  Sex: Female
  Weight: 2.1 kg

DRUGS (3)
  1. VALGANCICLOVIR. [Suspect]
     Active Substance: VALGANCICLOVIR
     Indication: CONGENITAL CYTOMEGALOVIRUS INFECTION
     Dosage: 18 MG/KG, QD ((16 TO 18)
     Route: 048
  2. GANCICLOVIR. [Suspect]
     Active Substance: GANCICLOVIR
     Indication: CONGENITAL CYTOMEGALOVIRUS INFECTION
     Dosage: 6 MG/KG, BID
     Route: 042
  3. GANCICLOVIR. [Suspect]
     Active Substance: GANCICLOVIR
     Dosage: 6 MG/KG, BID
     Route: 042

REACTIONS (5)
  - Meningitis bacterial [Recovered/Resolved]
  - Viral infection [Unknown]
  - Ill-defined disorder [Unknown]
  - Congenital cytomegalovirus infection [Unknown]
  - Sepsis [Recovered/Resolved]
